FAERS Safety Report 5373492-1 (Version None)
Quarter: 2007Q2

REPORT INFORMATION
  Report Type: 
  Country: None (occurrence: None)
  Receive Date: 20070628
  Receipt Date: 20070619
  Transmission Date: 20071010
  Serious: Yes (Hospitalization, Other)
  Sender: FDA-Public Use
  Company Number: US-AMGEN-US229510

PATIENT
  Sex: Female

DRUGS (1)
  1. ENBREL [Suspect]
     Indication: PSORIASIS
     Route: 058
     Dates: start: 20050404

REACTIONS (3)
  - ARTERIOSCLEROSIS CORONARY ARTERY [None]
  - CARDIAC DISORDER [None]
  - MYOCARDIAL INFARCTION [None]
